FAERS Safety Report 4872030-7 (Version None)
Quarter: 2006Q1

REPORT INFORMATION
  Report Type: 
  Country: None (occurrence: None)
  Receive Date: 20060104
  Receipt Date: 20031208
  Transmission Date: 20060701
  Serious: Yes (Death, Hospitalization)
  Sender: FDA-Public Use
  Company Number: 200313382FR

PATIENT
  Age: 73 Year
  Sex: Female

DRUGS (8)
  1. ALTACE [Suspect]
     Indication: ESSENTIAL HYPERTENSION
     Route: 048
  2. DAONIL [Suspect]
     Indication: DIABETES MELLITUS NON-INSULIN-DEPENDENT
     Dosage: 5 MG, TID
     Route: 048
  3. DAONIL [Suspect]
     Dosage: 2.5 MG, TID
     Route: 048
     Dates: end: 20030717
  4. INIPOMP [Suspect]
     Dosage: UNK, QD
     Route: 048
     Dates: end: 20030717
  5. GLUCOPHAGE [Suspect]
     Indication: DIABETES MELLITUS NON-INSULIN-DEPENDENT
     Dosage: 500 MG, QD
     Route: 048
     Dates: end: 20030717
  6. SPECIAFOLDINE [Concomitant]
     Indication: ANAEMIA
     Route: 048
  7. ACETAMINOPHEN [Interacting]
     Route: 048
  8. ESOMEPRAZOLE [Concomitant]

REACTIONS (13)
  - ANOREXIA [None]
  - ANTINUCLEAR ANTIBODY POSITIVE [None]
  - ASTHENIA [None]
  - CARDIO-RESPIRATORY ARREST [None]
  - DRUG INTERACTION [None]
  - HAEMOGLOBIN DECREASED [None]
  - HAEMOLYSIS [None]
  - HAPTOGLOBIN DECREASED [None]
  - HYPOGLYCAEMIA [None]
  - NORMOCHROMIC NORMOCYTIC ANAEMIA [None]
  - RED BLOOD CELL COUNT DECREASED [None]
  - VITAMIN B12 DEFICIENCY [None]
  - WEIGHT DECREASED [None]
